FAERS Safety Report 10213126 (Version 2)
Quarter: 2014Q3

REPORT INFORMATION
  Report Type: Spontaneous
  Country: US (occurrence: US)
  Receive Date: 20140603
  Receipt Date: 20140825
  Transmission Date: 20150326
  Serious: No
  Sender: FDA-Public Use
  Company Number: US-009507513-1406USA000718

PATIENT
  Age: 28 Year
  Sex: Female
  Weight: 111.11 kg

DRUGS (1)
  1. NEXPLANON [Suspect]
     Active Substance: ETONOGESTREL
     Indication: CONTRACEPTION
     Dosage: SINGLE ROD
     Route: 023
     Dates: start: 201403, end: 20140725

REACTIONS (2)
  - Incorrect route of drug administration [Unknown]
  - Implant site pruritus [Recovered/Resolved]

NARRATIVE: CASE EVENT DATE: 201403
